FAERS Safety Report 9996989 (Version 1)
Quarter: 2014Q1

REPORT INFORMATION
  Report Type: Spontaneous
  Country: US (occurrence: US)
  Receive Date: 20140311
  Receipt Date: 20140311
  Transmission Date: 20141002
  Serious: No
  Sender: FDA-Public Use
  Company Number: US-GLAXOSMITHKLINE-A1048797A

PATIENT
  Age: 27 Year
  Sex: Female

DRUGS (1)
  1. NICORETTE FRUIT CHILL OTC 4MG [Suspect]
     Indication: EX-TOBACCO USER
     Route: 002

REACTIONS (5)
  - Abdominal pain upper [Recovered/Resolved]
  - Nausea [Recovered/Resolved]
  - Malaise [Recovered/Resolved]
  - Nicotine dependence [Not Recovered/Not Resolved]
  - Product quality issue [Unknown]
